FAERS Safety Report 5196276-6 (Version None)
Quarter: 2006Q4

REPORT INFORMATION
  Report Type: 
  Country: None (occurrence: None)
  Receive Date: 20061222
  Receipt Date: 20061211
  Transmission Date: 20070319
  Serious: Yes (Hospitalization)
  Sender: FDA-Public Use
  Company Number: 2006152775

PATIENT
  Age: 68 Year
  Sex: Female
  Weight: 75 kg

DRUGS (1)
  1. SUTENT [Suspect]
     Dosage: 37.5 MG(37.5 MG,3 X 12.5 MG DAILY), ORA

REACTIONS (1)
  - ANGINA PECTORIS [None]
